FAERS Safety Report 6197116-9 (Version None)
Quarter: 2009Q2

REPORT INFORMATION
  Report Type: 
  Country: None (occurrence: None)
  Receive Date: 20090520
  Receipt Date: 20090514
  Transmission Date: 20091009
  Serious: Yes (Death, Other)
  Sender: FDA-Public Use
  Company Number: RU-ELI_LILLY_AND_COMPANY-RU200905003427

PATIENT
  Sex: Female

DRUGS (2)
  1. GEMCITABINE HCL [Suspect]
     Indication: PANCREATIC CARCINOMA
     Dosage: 400 MG/M2, OTHER
     Route: 013
  2. GEMCITABINE HCL [Suspect]
     Dosage: 1000 MG/M2,  SIX CYCLES
     Route: 013

REACTIONS (3)
  - HEPATIC ARTERY THROMBOSIS [None]
  - MULTI-ORGAN FAILURE [None]
  - SEPSIS [None]
